FAERS Safety Report 24742322 (Version 2)
Quarter: 2025Q1

REPORT INFORMATION
  Report Type: Spontaneous
  Country: US (occurrence: US)
  Receive Date: 20241217
  Receipt Date: 20250107
  Transmission Date: 20250408
  Serious: Yes (Other)
  Sender: AMGEN
  Company Number: US-AMGEN-USASP2024245833

PATIENT
  Sex: Female

DRUGS (1)
  1. IMDELLTRA [Suspect]
     Active Substance: TARLATAMAB-DLLE
     Indication: Small cell lung cancer extensive stage
     Dosage: UNK UNK, Q2WK
     Route: 065
     Dates: start: 202411

REACTIONS (3)
  - Hallucination [Recovering/Resolving]
  - Neurological symptom [Recovering/Resolving]
  - Confusional state [Unknown]
